FAERS Safety Report 23111625 (Version 1)
Quarter: 2023Q4

REPORT INFORMATION
  Report Type: Report from Study
  Country: CA (occurrence: CA)
  Receive Date: 20231026
  Receipt Date: 20231026
  Transmission Date: 20240110
  Serious: Yes (Other)
  Sender: FDA-Public Use
  Company Number: CA-002147023-NVSC2023CA228276

PATIENT
  Age: 13 Year
  Sex: Female

DRUGS (1)
  1. JADENU [Suspect]
     Active Substance: DEFERASIROX
     Indication: Iron overload
     Dosage: 900 MG, QD
     Route: 048
     Dates: start: 20200610

REACTIONS (3)
  - Cardiac dysfunction [Unknown]
  - Pancreatic disorder [Unknown]
  - Iron overload [Unknown]
